FAERS Safety Report 7135537-8 (Version None)
Quarter: 2010Q4

REPORT INFORMATION
  Report Type: 
  Country: None (occurrence: None)
  Receive Date: 20101203
  Receipt Date: 20101119
  Transmission Date: 20110411
  Serious: Yes (Other)
  Sender: FDA-Public Use
  Company Number: US-ELI_LILLY_AND_COMPANY-US201010002162

PATIENT
  Sex: Female

DRUGS (4)
  1. CYMBALTA [Suspect]
     Indication: MENOPAUSAL SYMPTOMS
     Dosage: 60 MG, DAILY (1/D)
     Dates: start: 20060101, end: 20100810
  2. CYMBALTA [Suspect]
     Dosage: 30 MG, DAILY (1/D)
     Dates: start: 20100811, end: 20100909
  3. CYMBALTA [Suspect]
     Dosage: 20 MG, DAILY (1/D)
     Dates: start: 20100910, end: 20100923
  4. CYMBALTA [Suspect]
     Dosage: 20 MG, QOD
     Dates: start: 20100926, end: 20101002

REACTIONS (2)
  - ARRHYTHMIA [None]
  - OFF LABEL USE [None]
